FAERS Safety Report 4658907-6 (Version None)
Quarter: 2005Q2

REPORT INFORMATION
  Report Type: 
  Country: None (occurrence: None)
  Receive Date: 20050511
  Receipt Date: 20050504
  Transmission Date: 20051028
  Serious: Yes (Death, Hospitalization)
  Sender: FDA-Public Use
  Company Number: US-KINGPHARMUSA00001-K200500567

PATIENT
  Age: 83 Year
  Sex: Female

DRUGS (11)
  1. ALTACE [Suspect]
     Dosage: 2.5 MG, QD
     Route: 048
     Dates: end: 20050102
  2. CIPRAMIL [Suspect]
     Dosage: 20 MG, QD
     Route: 048
     Dates: start: 20041129, end: 20041215
  3. CIPRAMIL [Suspect]
     Dosage: 10 MG, QD
     Route: 048
     Dates: start: 20041216, end: 20041217
  4. PLANUM [Concomitant]
     Dosage: 10 MG, UNK
     Route: 048
     Dates: end: 20050102
  5. NEBILET [Concomitant]
     Dosage: 5 MG, UNK
     Route: 048
     Dates: end: 20050102
  6. ASS ^CT-ARZNEIMITTEL^ [Concomitant]
     Dosage: 100 MG, UNK
     Route: 048
     Dates: end: 20050102
  7. DIGIMERCK [Concomitant]
     Dosage: .05 MG, UNK
     Route: 048
     Dates: end: 20050102
  8. FORADIL [Concomitant]
     Dates: end: 20050102
  9. FLUTIDE [Concomitant]
     Dates: end: 20050102
  10. CLEXANE [Concomitant]
     Dosage: 20 MG, UNK
     Route: 058
     Dates: end: 20050102
  11. REMERGIL [Concomitant]
     Dates: start: 20041215, end: 20050102

REACTIONS (5)
  - CARDIAC ARREST [None]
  - DEATH [None]
  - HYPONATRAEMIA [None]
  - NAUSEA [None]
  - PULMONARY EMBOLISM [None]
